FAERS Safety Report 5051190-1 (Version None)
Quarter: 2006Q3

REPORT INFORMATION
  Report Type: 
  Country: None (occurrence: None)
  Receive Date: 20060714
  Receipt Date: 20060704
  Transmission Date: 20061208
  Serious: Yes (Hospitalization)
  Sender: FDA-Public Use
  Company Number: FR-ROCHE-454290

PATIENT
  Age: 43 Year
  Sex: Male
  Weight: 60 kg

DRUGS (7)
  1. PEGASYS [Suspect]
     Indication: HEPATITIS C
     Route: 058
     Dates: start: 20051212, end: 20060515
  2. REBETOL [Suspect]
     Indication: HEPATITIS C
     Route: 048
     Dates: start: 20051212, end: 20060601
  3. KIVEXA [Concomitant]
     Indication: HIV INFECTION
  4. VIREAD [Concomitant]
     Indication: HIV INFECTION
  5. KALETRA [Concomitant]
     Indication: HIV INFECTION
  6. DEROXAT [Concomitant]
  7. STILNOX [Concomitant]

REACTIONS (9)
  - CHORIOMENINGITIS LYMPHOCYTIC [None]
  - HYPOACUSIS [None]
  - LEUKOPENIA [None]
  - NEUTROPENIA [None]
  - RASH [None]
  - RETINAL DISORDER [None]
  - SYPHILIS TEST POSITIVE [None]
  - TINNITUS [None]
  - VISUAL ACUITY REDUCED [None]
